FAERS Safety Report 20744578 (Version 9)
Quarter: 2024Q3

REPORT INFORMATION
  Report Type: Report from Study
  Country: DE (occurrence: DE)
  Receive Date: 20220425
  Receipt Date: 20240902
  Transmission Date: 20241016
  Serious: No
  Sender: PUMA
  Company Number: DE-PFM-2021-08873

PATIENT

DRUGS (11)
  1. NERATINIB [Suspect]
     Active Substance: NERATINIB
     Indication: Breast cancer
     Dosage: 240 MG/ DAY
     Route: 048
     Dates: start: 20210722, end: 20220719
  2. NERATINIB [Suspect]
     Active Substance: NERATINIB
     Dosage: UNK
     Route: 065
     Dates: start: 20211110
  3. LEVOTHYROXINE SODIUM [Concomitant]
     Active Substance: LEVOTHYROXINE SODIUM
     Indication: Prophylaxis
     Dosage: 75 MG, DAILY
     Route: 048
     Dates: start: 20091231
  4. TAMOXIFEN [Concomitant]
     Active Substance: TAMOXIFEN
     Indication: Prophylaxis
     Dosage: 20 MG, DAILY
     Route: 048
     Dates: start: 20210721, end: 202204
  5. TAMOXIFEN [Concomitant]
     Active Substance: TAMOXIFEN
     Dosage: 10 MG,DAILY
     Route: 048
     Dates: start: 202204, end: 20220523
  6. TAMOXIFEN [Concomitant]
     Active Substance: TAMOXIFEN
     Dosage: 20 MG, DAILY
     Route: 048
     Dates: start: 20220524
  7. LOPERAMIDE [Concomitant]
     Active Substance: LOPERAMIDE
     Indication: Prophylaxis against diarrhoea
     Dosage: 4 MG, PRN ( AS NEEDED)
     Route: 048
     Dates: start: 20210722, end: 20211017
  8. LOPERAMIDE [Concomitant]
     Active Substance: LOPERAMIDE
     Dosage: 2 MG DAILY
     Route: 048
     Dates: start: 20211018, end: 20220524
  9. LOPERAMIDE [Concomitant]
     Active Substance: LOPERAMIDE
     Dosage: 10 MG,DAILY
     Route: 048
     Dates: start: 20220525, end: 20220601
  10. LOPERAMIDE [Concomitant]
     Active Substance: LOPERAMIDE
     Dosage: 2 MG DAILY
     Route: 048
     Dates: start: 20220602, end: 20220719
  11. LEUPROLIDE ACETATE [Concomitant]
     Active Substance: ISOPROPYL ALCOHOL\LEUPROLIDE ACETATE
     Indication: Breast cancer
     Dosage: UNK
     Route: 065
     Dates: start: 202003

REACTIONS (16)
  - Thrombocytopenia [Recovered/Resolved]
  - Skin infection [Recovered/Resolved]
  - Blood bilirubin decreased [Recovered/Resolved]
  - Gamma-glutamyltransferase increased [Recovering/Resolving]
  - Haemoglobin decreased [Recovered/Resolved]
  - Red blood cell count decreased [Recovered/Resolved]
  - Haematocrit decreased [Recovered/Resolved]
  - Influenza [Recovered/Resolved]
  - Gingival bleeding [Not Recovered/Not Resolved]
  - Epistaxis [Recovered/Resolved]
  - Diarrhoea [Recovered/Resolved]
  - Vomiting [Recovered/Resolved]
  - Dizziness [Recovered/Resolved]
  - Diarrhoea [Recovered/Resolved]
  - Onychoclasis [Not Recovered/Not Resolved]
  - COVID-19 [Recovered/Resolved]

NARRATIVE: CASE EVENT DATE: 20210723
